FAERS Safety Report 11361517 (Version 2)
Quarter: 2015Q3

REPORT INFORMATION
  Report Type: Report from Study
  Country: US (occurrence: US)
  Receive Date: 20150810
  Receipt Date: 20150922
  Transmission Date: 20151125
  Serious: Yes (Other)
  Sender: FDA-Public Use
  Company Number: US-BIOGENIDEC-2015BI109438

PATIENT
  Age: 36 Year
  Sex: Female
  Weight: 69 kg

DRUGS (27)
  1. TECFIDERA [Suspect]
     Active Substance: DIMETHYL FUMARATE
     Indication: MULTIPLE SCLEROSIS
     Route: 048
     Dates: start: 20141211
  2. TECFIDERA [Suspect]
     Active Substance: DIMETHYL FUMARATE
     Indication: MULTIPLE SCLEROSIS
     Route: 048
     Dates: start: 201508
  3. FAMOTIDINE. [Concomitant]
     Active Substance: FAMOTIDINE
  4. ALPRAZOLAM. [Concomitant]
     Active Substance: ALPRAZOLAM
  5. MIRALAX [Concomitant]
     Active Substance: POLYETHYLENE GLYCOL 3350
  6. MINOCYCLINE HCL [Concomitant]
     Active Substance: MINOCYCLINE HYDROCHLORIDE
  7. DETROL LA [Concomitant]
     Active Substance: TOLTERODINE TARTRATE
  8. DOCUSATE SODIUM. [Concomitant]
     Active Substance: DOCUSATE SODIUM
  9. EPIPEN [Concomitant]
     Active Substance: EPINEPHRINE
  10. FUROSEMIDE. [Concomitant]
     Active Substance: FUROSEMIDE
  11. VENLAFAXINE HCL [Concomitant]
     Active Substance: VENLAFAXINE HYDROCHLORIDE
  12. CALCIUM CARBONATE. [Concomitant]
     Active Substance: CALCIUM CARBONATE
  13. ASPIRIN. [Concomitant]
     Active Substance: ASPIRIN
  14. CITOLOPRAM HYDROBROMIDE [Concomitant]
  15. CLOTRIMAZOLE. [Concomitant]
     Active Substance: CLOTRIMAZOLE
  16. IBUPROFEN. [Concomitant]
     Active Substance: IBUPROFEN
  17. METOPROLOL TARTRATE. [Concomitant]
     Active Substance: METOPROLOL TARTRATE
  18. BACLOFEN. [Concomitant]
     Active Substance: BACLOFEN
  19. CELECOXIB. [Concomitant]
     Active Substance: CELECOXIB
  20. LISINOPRIL. [Concomitant]
     Active Substance: LISINOPRIL
  21. ONDANSETRON HCL [Concomitant]
     Active Substance: ONDANSETRON HYDROCHLORIDE
  22. POTASSIUM CHLORIDE. [Concomitant]
     Active Substance: POTASSIUM CHLORIDE
  23. SENOKOT [Concomitant]
     Active Substance: SENNOSIDES
  24. THERA VITAL M [Concomitant]
  25. ACETAMINOPHEN. [Concomitant]
     Active Substance: ACETAMINOPHEN
  26. FOLIC ACID. [Concomitant]
     Active Substance: FOLIC ACID
  27. WELLBUTRIN SR [Concomitant]
     Active Substance: BUPROPION HYDROCHLORIDE

REACTIONS (3)
  - Subacute endocarditis [Not Recovered/Not Resolved]
  - Cerebrovascular accident [Not Recovered/Not Resolved]
  - Drug abuse [Recovered/Resolved]

NARRATIVE: CASE EVENT DATE: 201505
